FAERS Safety Report 8740328 (Version 2)
Quarter: 2013Q4

REPORT INFORMATION
  Report Type: Spontaneous
  Country: US (occurrence: US)
  Receive Date: 20120823
  Receipt Date: 20131031
  Transmission Date: 20140711
  Serious: No
  Sender: FDA-Public Use
  Company Number: US-009507513-2012SP030874

PATIENT
  Age: 26 Year
  Sex: Female

DRUGS (3)
  1. DULERA [Suspect]
     Indication: ASTHMA
     Dosage: 200/5MCG, BID
     Route: 055
     Dates: start: 201101
  2. SUDAFED [Concomitant]
     Indication: PRODUCT USED FOR UNKNOWN INDICATION
  3. SINGULAIR [Concomitant]

REACTIONS (1)
  - Drug effect decreased [Unknown]
